FAERS Safety Report 5011309-5 (Version None)
Quarter: 2006Q2

REPORT INFORMATION
  Report Type: 
  Country: None (occurrence: None)
  Receive Date: 20060525
  Receipt Date: 20060522
  Transmission Date: 20061013
  Serious: Yes (Hospitalization)
  Sender: FDA-Public Use
  Company Number: US-BOEHRINGER INGELHEIM PHARMACEUTICALS, INC.-2006-BP-05741BP

PATIENT
  Sex: Female

DRUGS (4)
  1. SPIRIVA [Suspect]
     Indication: CHRONIC OBSTRUCTIVE PULMONARY DISEASE
     Route: 055
     Dates: start: 20050401
  2. ALBUTEROL SULFATE AUTOHALER [Concomitant]
     Route: 055
  3. ADVAIR DISKUS 100/50 [Concomitant]
     Route: 055
  4. SINGULAIR [Concomitant]
     Route: 048

REACTIONS (3)
  - ASTHMA [None]
  - COUGH [None]
  - RETCHING [None]
